FAERS Safety Report 10101214 (Version 1)
Quarter: 2014Q2

REPORT INFORMATION
  Report Type: Spontaneous
  Country: KR (occurrence: None)
  Receive Date: 20140422
  Receipt Date: 20140422
  Transmission Date: 20141212
  Serious: Yes (Death)
  Sender: FDA-Public Use
  Company Number: 2014KP00363

PATIENT
  Age: 67 Year
  Sex: Male

DRUGS (2)
  1. GEMCITABINE (GEMCITABINE) INJECTION [Suspect]
     Dosage: 1.000 MG/M2 ON DAY 1 AND 8
  2. CISPLATIN [Suspect]
     Dosage: 70 MG/M2 ON DAY 1

REACTIONS (2)
  - Interstitial lung disease [None]
  - Condition aggravated [None]
